FAERS Safety Report 10204702 (Version 1)
Quarter: 2014Q2

REPORT INFORMATION
  Report Type: Spontaneous
  Country: US (occurrence: None)
  Receive Date: 20140527
  Receipt Date: 20140527
  Transmission Date: 20141212
  Serious: No
  Sender: FDA-Public Use
  Company Number: None

PATIENT
  Age: 55 Year
  Sex: Female

DRUGS (1)
  1. DILANTIN [Suspect]
     Indication: CONVULSION
     Dates: start: 20120816, end: 20120914

REACTIONS (21)
  - Nausea [None]
  - Vomiting [None]
  - Rash [None]
  - Swelling face [None]
  - Lip swelling [None]
  - Erythema [None]
  - Skin burning sensation [None]
  - Tongue oedema [None]
  - Oedema peripheral [None]
  - Petechiae [None]
  - Dry skin [None]
  - Skin exfoliation [None]
  - Aspartate aminotransferase increased [None]
  - Alanine aminotransferase increased [None]
  - Infection reactivation [None]
  - Herpes simplex [None]
  - Blood alkaline phosphatase increased [None]
  - Blood bilirubin increased [None]
  - Protein total decreased [None]
  - Blood albumin decreased [None]
  - Hepatocellular injury [None]
